FAERS Safety Report 22139379 (Version 1)
Quarter: 2023Q1

REPORT INFORMATION
  Report Type: Spontaneous
  Country: CA (occurrence: CA)
  Receive Date: 20230327
  Receipt Date: 20230327
  Transmission Date: 20230417
  Serious: Yes (Other)
  Sender: FDA-Public Use
  Company Number: CA-JNJFOC-20230362311

PATIENT
  Age: 60 Year
  Sex: Female
  Weight: 80 kg

DRUGS (6)
  1. REMICADE [Suspect]
     Active Substance: INFLIXIMAB
     Indication: Crohn^s disease
     Route: 041
  2. CALCIUM [Concomitant]
     Active Substance: CALCIUM
  3. MAGNESIUM [Concomitant]
     Active Substance: MAGNESIUM
  4. METHOTREXATE [Concomitant]
     Active Substance: METHOTREXATE
  5. PAROXETINE [Concomitant]
     Active Substance: PAROXETINE
  6. PROLIA [Concomitant]
     Active Substance: DENOSUMAB
     Route: 058

REACTIONS (3)
  - Nephrolithiasis [Unknown]
  - Blood pressure decreased [Unknown]
  - Dizziness [Unknown]
